FAERS Safety Report 11472226 (Version 1)
Quarter: 2015Q3

REPORT INFORMATION
  Report Type: Spontaneous
  Country: US (occurrence: US)
  Receive Date: 20150908
  Receipt Date: 20150908
  Transmission Date: 20151125
  Serious: No
  Sender: FDA-Public Use
  Company Number: US-SA-2015SA080005

PATIENT

DRUGS (4)
  1. TOUJEO [Suspect]
     Active Substance: INSULIN GLARGINE
     Indication: DIABETES MELLITUS
     Dosage: DOSE:FIRST WAS 40 UNITS A DAY THAN WAS 50 AND NOW 70 UNITS PER DAY
     Route: 065
  2. HUMULIN N [Concomitant]
     Active Substance: INSULIN HUMAN
  3. SOLOSTAR [Concomitant]
     Active Substance: DEVICE
  4. NOVOLOG [Concomitant]
     Active Substance: INSULIN ASPART
     Dosage: FREQUENCY: WITH MEALS

REACTIONS (2)
  - Drug ineffective [Unknown]
  - Blood glucose increased [Unknown]
